FAERS Safety Report 4587326-6 (Version None)
Quarter: 2005Q1

REPORT INFORMATION
  Report Type: 
  Country: None (occurrence: None)
  Receive Date: 20050215
  Receipt Date: 20050204
  Transmission Date: 20050727
  Serious: Yes (Hospitalization)
  Sender: FDA-Public Use
  Company Number: 2005AP00798

PATIENT
  Age: 67 Year
  Sex: Male

DRUGS (4)
  1. NEXIUM [Suspect]
     Indication: OESOPHAGEAL DISORDER
     Dosage: 20 MG DAILY PO
     Route: 048
     Dates: start: 20020905, end: 20040527
  2. INSULIN [Concomitant]
  3. LIPITOR [Concomitant]
  4. TRITACE [Concomitant]

REACTIONS (2)
  - NEPHRITIS INTERSTITIAL [None]
  - RENAL FAILURE [None]
